FAERS Safety Report 6195393-1 (Version None)
Quarter: 2009Q2

REPORT INFORMATION
  Report Type: 
  Country: None (occurrence: None)
  Receive Date: 20090519
  Receipt Date: 20090515
  Transmission Date: 20091009
  Serious: No
  Sender: FDA-Public Use
  Company Number: US-B.I. PHARMACEUTICALS,INC./RIDGEFIELD-2009-BP-05569BP

PATIENT
  Age: 86 Year
  Sex: Male

DRUGS (8)
  1. FLOMAX [Suspect]
     Indication: BENIGN PROSTATIC HYPERPLASIA
     Dosage: .4MG
     Route: 048
     Dates: start: 20090403
  2. FLOMAX [Suspect]
     Indication: POLLAKIURIA
     Dosage: .4MG
     Route: 048
     Dates: start: 20070101
  3. ASPIRIN [Concomitant]
     Indication: CARDIAC DISORDER
  4. HYDROCHLOROTHIAZIDE [Concomitant]
     Indication: HYPERTENSION
     Dosage: 12.5MG
  5. DARVOCET [Concomitant]
     Indication: PAIN
  6. TRICOR [Concomitant]
     Indication: BLOOD CHOLESTEROL INCREASED
     Dosage: 145MG
  7. TERAZOSIN HCL [Concomitant]
     Dosage: 5MG
  8. ATENOLOL [Concomitant]
     Dosage: 50MG

REACTIONS (1)
  - NOCTURIA [None]
